FAERS Safety Report 15661564 (Version 4)
Quarter: 2019Q1

REPORT INFORMATION
  Report Type: Report from Study
  Country: HU (occurrence: HU)
  Receive Date: 20181127
  Receipt Date: 20190219
  Transmission Date: 20190417
  Serious: Yes (Hospitalization)
  Sender: FDA-Public Use
  Company Number: HU-ROCHE-2218501

PATIENT
  Age: 63 Year
  Sex: Male
  Weight: 61 kg

DRUGS (27)
  1. ACETYLSALICYLIC ACID [Concomitant]
     Active Substance: ASPIRIN
     Indication: MYOCARDIAL ISCHAEMIA
     Route: 048
     Dates: start: 20171026
  2. OCTENISEPT (HUNGARY) [Concomitant]
     Indication: ACNE
     Route: 062
     Dates: start: 20180905
  3. CREMOR REFRIGERANS FONO VII. NATURLAND [Concomitant]
     Indication: ACNE
     Route: 062
     Dates: start: 20181015
  4. NEBIVOLOL. [Concomitant]
     Active Substance: NEBIVOLOL
     Indication: MYOCARDIAL ISCHAEMIA
     Route: 048
     Dates: start: 20171026
  5. DETERGENS SULFURATUM [Concomitant]
     Indication: ACNE
     Route: 062
     Dates: start: 20181005
  6. POTASSIUM CHLORIDE. [Concomitant]
     Active Substance: POTASSIUM CHLORIDE
     Route: 048
     Dates: start: 20181110
  7. METHYLPREDNISOLON [Concomitant]
     Active Substance: METHYLPREDNISOLONE
     Route: 048
     Dates: start: 20190204
  8. POTASSIUM CHLORIDE. [Concomitant]
     Active Substance: POTASSIUM CHLORIDE
     Indication: HYPOKALAEMIA
     Route: 048
     Dates: start: 20181010, end: 20181109
  9. ROSUVASTATIN. [Concomitant]
     Active Substance: ROSUVASTATIN
     Indication: MYOCARDIAL ISCHAEMIA
     Route: 048
     Dates: start: 20171026
  10. ZINDACLIN [Concomitant]
     Indication: ACNE
     Route: 062
     Dates: start: 20181005
  11. LOPEDIUM [Concomitant]
     Active Substance: LOPERAMIDE
     Indication: DIARRHOEA
     Route: 048
     Dates: start: 20181011, end: 20181014
  12. SOLU-MEDROL [Concomitant]
     Active Substance: METHYLPREDNISOLONE SODIUM SUCCINATE
     Route: 048
     Dates: start: 20181226, end: 20190123
  13. MAGNESIUM OROTATE [Concomitant]
     Indication: MYOCARDIAL ISCHAEMIA
     Route: 048
     Dates: start: 20170926
  14. TRIMETAZIDIN [Concomitant]
     Active Substance: TRIMETAZIDINE
     Indication: MYOCARDIAL ISCHAEMIA
     Route: 048
     Dates: start: 20171026
  15. PANTOPRAZOLE [Concomitant]
     Active Substance: PANTOPRAZOLE
     Indication: GASTRIC ULCER
     Route: 048
     Dates: start: 20181204
  16. CLEXANE [Concomitant]
     Active Substance: ENOXAPARIN SODIUM
     Indication: PULMONARY EMBOLISM
     Route: 058
     Dates: start: 20190124, end: 20190203
  17. METHYLPREDNISOLON [Concomitant]
     Active Substance: METHYLPREDNISOLONE
     Route: 048
     Dates: start: 20190124, end: 20190203
  18. COBIMETINIB. [Suspect]
     Active Substance: COBIMETINIB
     Indication: MALIGNANT MELANOMA
     Dosage: ONCE DAILY ON A 21 DAYS ON, 7 DAYS OFF SCHEDULE.?MOST RECENT DOSE OF COBIMETINIB (40 MG) PRIOR TO DI
     Route: 048
     Dates: start: 20180925
  19. DUAMILD [Concomitant]
     Indication: BENIGN PROSTATIC HYPERPLASIA
     Route: 048
     Dates: start: 201201
  20. SUSPENSIO ZINCI AQUOSA [Concomitant]
     Indication: ACNE
     Route: 062
     Dates: start: 20181005
  21. CALCIUM CITRATE [Concomitant]
     Active Substance: CALCIUM CITRATE
     Indication: HYPOCALCAEMIA
     Route: 048
     Dates: start: 20181011
  22. SODIUM CHLORIDE. [Concomitant]
     Active Substance: SODIUM CHLORIDE
     Indication: HYPOTENSION
     Route: 042
     Dates: start: 20181117, end: 20181117
  23. PERINDOPRIL [Concomitant]
     Active Substance: PERINDOPRIL
     Indication: MYOCARDIAL ISCHAEMIA
     Route: 048
     Dates: start: 20171026, end: 20181015
  24. SUSPENSIO SICCANS [Concomitant]
     Indication: ACNE
     Route: 062
     Dates: start: 20181010
  25. ATEZOLIZUMAB. [Suspect]
     Active Substance: ATEZOLIZUMAB
     Indication: MALIGNANT MELANOMA
     Dosage: MOST RECENT DOSE OF ATEZOLIZUMAB (820 MG) PRIOR TO DIARRHOEA AND COLITIS ONSET 08/NOV/2018.
     Route: 042
     Dates: start: 20180925
  26. CLOPIDOGREL [Concomitant]
     Active Substance: CLOPIDOGREL BISULFATE
     Indication: MYOCARDIAL ISCHAEMIA
     Route: 048
     Dates: start: 20171026
  27. CLEXANE [Concomitant]
     Active Substance: ENOXAPARIN SODIUM
     Route: 058
     Dates: start: 20190204

REACTIONS (2)
  - Colitis [Unknown]
  - Diarrhoea [Unknown]

NARRATIVE: CASE EVENT DATE: 20181110
